FAERS Safety Report 11711688 (Version 1)
Quarter: 2015Q4

REPORT INFORMATION
  Report Type: Spontaneous
  Country: US (occurrence: US)
  Receive Date: 20151104
  Receipt Date: 20151104
  Transmission Date: 20160304
  Serious: No
  Sender: FDA-Public Use
  Company Number: US-ELI_LILLY_AND_COMPANY-US201104004967

PATIENT
  Age: 56 Year
  Sex: Female

DRUGS (4)
  1. HORMONES [Concomitant]
     Active Substance: UNSPECIFIED INGREDIENT
     Dosage: UNK
  2. GINGER. [Concomitant]
     Active Substance: GINGER
     Indication: OSTEOARTHRITIS
  3. FISH OIL [Concomitant]
     Active Substance: FISH OIL
     Indication: OSTEOARTHRITIS
  4. FORTEO [Suspect]
     Active Substance: TERIPARATIDE
     Indication: OSTEOPOROSIS
     Dosage: 20 UG, QD
     Dates: start: 2009

REACTIONS (11)
  - Injection site bruising [Unknown]
  - Injection site pain [Unknown]
  - Drug dose omission [Unknown]
  - Pelvic pain [Unknown]
  - Pain in extremity [Unknown]
  - Bone pain [Not Recovered/Not Resolved]
  - Malaise [Unknown]
  - Fatigue [Unknown]
  - Feeling abnormal [Unknown]
  - Pain [Unknown]
  - Injection site haemorrhage [Unknown]
